FAERS Safety Report 6382624-8 (Version None)
Quarter: 2009Q3

REPORT INFORMATION
  Report Type: 
  Country: None (occurrence: None)
  Receive Date: 20090928
  Receipt Date: 20090928
  Transmission Date: 20100115
  Serious: Yes (Death, Hospitalization, Other)
  Sender: FDA-Public Use
  Company Number: None

PATIENT
  Age: 69 Year
  Sex: Male
  Weight: 72.1 kg

DRUGS (9)
  1. CAPECITABINE [Suspect]
     Indication: PANCREATIC CARCINOMA
     Dosage: 11100 MG/DAY PO
     Route: 048
     Dates: start: 20090417, end: 20090702
  2. ENOXAPARIN [Concomitant]
  3. LORAX [Concomitant]
  4. ESCITALOPRAM [Concomitant]
  5. BESEROL [Concomitant]
  6. DECA-DURABOLIN [Concomitant]
  7. DIPROSPAN [Concomitant]
  8. CLORIDRATO DE MEDIZINA [Concomitant]
  9. MEGESTAT [Concomitant]

REACTIONS (6)
  - CEREBRAL ISCHAEMIA [None]
  - HAEMATOCRIT DECREASED [None]
  - HAEMOGLOBIN DECREASED [None]
  - PLATELET COUNT DECREASED [None]
  - PROTHROMBIN TIME PROLONGED [None]
  - RED BLOOD CELL COUNT DECREASED [None]
